FAERS Safety Report 8943893 (Version 1)
Quarter: 2012Q4

REPORT INFORMATION
  Report Type: Report from Study
  Country: JP (occurrence: JP)
  Receive Date: 20121204
  Receipt Date: 20121204
  Transmission Date: 20130627
  Serious: Yes (Other)
  Sender: FDA-Public Use
  Company Number: JP-ASTELLAS-2012US011199

PATIENT
  Age: 66 Year
  Sex: Male
  Weight: 37 kg

DRUGS (5)
  1. ERLOTINIB TABLET [Suspect]
     Indication: PANCREATIC CARCINOMA
     Dosage: 100 mg, UID/QD
     Route: 048
     Dates: start: 20120720, end: 20120803
  2. GEMCITABINE HYDROCHLORIDE [Concomitant]
     Indication: PANCREATIC CARCINOMA
     Dosage: 1300 mg, UID/QD
     Route: 041
     Dates: start: 20120720, end: 20120720
  3. GEMCITABINE HYDROCHLORIDE [Concomitant]
     Dosage: 1300 mg, UID/QD
     Route: 041
     Dates: start: 20120727, end: 20120727
  4. MAGLAX [Concomitant]
     Indication: PRODUCT USED FOR UNKNOWN INDICATION
     Dosage: 500 mg, UID/QD
     Route: 048
     Dates: start: 20120717
  5. PURSENNID /00142207/ [Concomitant]
     Indication: PRODUCT USED FOR UNKNOWN INDICATION
     Dosage: 12 mg, UID/QD
     Route: 048
     Dates: start: 20120717

REACTIONS (5)
  - White blood cell count decreased [Unknown]
  - Eosinophil count increased [Unknown]
  - Intestinal obstruction [Unknown]
  - Malignant neoplasm progression [Unknown]
  - Drug eruption [Recovered/Resolved]
